FAERS Safety Report 11994850 (Version 3)
Quarter: 2016Q3

REPORT INFORMATION
  Report Type: Report from Study
  Country: DE (occurrence: DE)
  Receive Date: 20160203
  Receipt Date: 20160812
  Transmission Date: 20161109
  Serious: Yes (Hospitalization)
  Sender: FDA-Public Use
  Company Number: PHHY2016DE002047

PATIENT
  Age: 20 Year
  Sex: Female

DRUGS (1)
  1. VOTUBIA [Suspect]
     Active Substance: EVEROLIMUS
     Indication: TUBEROUS SCLEROSIS
     Dosage: 5 MG, ONCE EVERY OTHER DAY
     Route: 065
     Dates: start: 20130608

REACTIONS (2)
  - Aggression [Recovered/Resolved]
  - Autism [Recovering/Resolving]

NARRATIVE: CASE EVENT DATE: 20151019
